FAERS Safety Report 11885565 (Version 5)
Quarter: 2016Q2

REPORT INFORMATION
  Report Type: Report from Study
  Country: US (occurrence: US)
  Receive Date: 20160104
  Receipt Date: 20160418
  Transmission Date: 20160815
  Serious: Yes (Hospitalization)
  Sender: FDA-Public Use
  Company Number: US-BIOGEN-2015BI148966

PATIENT
  Age: 75 Year
  Sex: Male

DRUGS (2)
  1. TYSABRI [Suspect]
     Active Substance: NATALIZUMAB
     Indication: MULTIPLE SCLEROSIS
     Dosage: INFUSED OVER 1 HOUR
     Route: 042
     Dates: start: 20070924
  2. TYSABRI [Suspect]
     Active Substance: NATALIZUMAB
     Dosage: INFUSED OVER 1 HOUR
     Route: 042

REACTIONS (12)
  - Ulcer [Not Recovered/Not Resolved]
  - Staphylococcal infection [Recovered/Resolved]
  - Decubitus ulcer [Not Recovered/Not Resolved]
  - Joint contracture [Not Recovered/Not Resolved]
  - Infection [Recovered/Resolved]
  - Drug dose omission [Recovered/Resolved]
  - Muscle spasms [Not Recovered/Not Resolved]
  - Cognitive disorder [Unknown]
  - Musculoskeletal disorder [Unknown]
  - Memory impairment [Unknown]
  - Multiple sclerosis [Not Recovered/Not Resolved]
  - Cystitis [Recovered/Resolved]

NARRATIVE: CASE EVENT DATE: 20150925
